FAERS Safety Report 8562678 (Version 8)
Quarter: 2012Q4

REPORT INFORMATION
  Report Type: Spontaneous
  Country: JP (occurrence: None)
  Receive Date: 20120509
  Receipt Date: 20120824
  Transmission Date: 20130627
  Serious: Yes (Hospitalization, Other)
  Sender: FDA-Public Use
  Company Number: ADR-2011-10530

PATIENT
  Age: 46 Year
  Sex: Female

DRUGS (1)
  1. BACLOFEN [Suspect]
     Indication: MUSCLE SPASTICITY
     Dosage: DAILY, INTRATH
     Route: 037

REACTIONS (5)
  - Intestinal obstruction [None]
  - Drug ineffective [None]
  - Postoperative ileus [None]
  - Postoperative adhesion [None]
  - Muscle contracture [None]
